FAERS Safety Report 12438304 (Version 2)
Quarter: 2016Q4

REPORT INFORMATION
  Report Type: Spontaneous
  Country: US (occurrence: US)
  Receive Date: 20160606
  Receipt Date: 20161020
  Transmission Date: 20170207
  Serious: No
  Sender: FDA-Public Use
  Company Number: US-GLAXOSMITHKLINE-US2016070984

PATIENT
  Age: 83 Year
  Sex: Male

DRUGS (10)
  1. NITROSTAT [Concomitant]
     Active Substance: NITROGLYCERIN
  2. SOTALOL. [Concomitant]
     Active Substance: SOTALOL
  3. SIMVASTATIN. [Concomitant]
     Active Substance: SIMVASTATIN
  4. ADVAIR DISKUS [Suspect]
     Active Substance: FLUTICASONE PROPIONATE\SALMETEROL XINAFOATE
     Indication: CHRONIC OBSTRUCTIVE PULMONARY DISEASE
     Dosage: 1 PUFF(S), BID
     Dates: start: 20160429, end: 20160518
  5. ADVAIR DISKUS [Suspect]
     Active Substance: FLUTICASONE PROPIONATE\SALMETEROL XINAFOATE
     Indication: PRODUCTIVE COUGH
  6. ALLOPURINOL. [Concomitant]
     Active Substance: ALLOPURINOL
  7. ASPIRIN (BABY) [Concomitant]
     Active Substance: ASPIRIN
  8. WARFARIN [Concomitant]
     Active Substance: WARFARIN
  9. AZITHROMYCIN ANHYDROUS. [Concomitant]
     Active Substance: AZITHROMYCIN ANHYDROUS
  10. LOSARTAN. [Concomitant]
     Active Substance: LOSARTAN

REACTIONS (3)
  - Oral discomfort [Not Recovered/Not Resolved]
  - Drug dose omission [Recovered/Resolved]
  - Gingival recession [Not Recovered/Not Resolved]

NARRATIVE: CASE EVENT DATE: 20160508
